FAERS Safety Report 15857870 (Version 3)
Quarter: 2021Q1

REPORT INFORMATION
  Report Type: Spontaneous
  Country: US (occurrence: US)
  Receive Date: 20190123
  Receipt Date: 20210128
  Transmission Date: 20210419
  Serious: Yes (Other)
  Sender: FDA-Public Use
  Company Number: US-ELI_LILLY_AND_COMPANY-US201901006797

PATIENT
  Sex: Male

DRUGS (15)
  1. HUMALOG KWIKPEN [Suspect]
     Active Substance: INSULIN LISPRO
     Indication: TYPE 1 DIABETES MELLITUS
     Dosage: 5 U, PRN (EACH MEAL)
     Route: 058
  2. TOUJEO [Concomitant]
     Active Substance: INSULIN GLARGINE
     Dosage: 6 U, EACH EVENING
  3. HUMALOG KWIKPEN [Suspect]
     Active Substance: INSULIN LISPRO
     Dosage: 5 U, PRN (EACH MEAL)
     Route: 058
  4. HUMALOG KWIKPEN [Suspect]
     Active Substance: INSULIN LISPRO
     Dosage: 5 U, PRN (EACH MEAL)
     Route: 058
  5. HUMALOG KWIKPEN [Suspect]
     Active Substance: INSULIN LISPRO
     Indication: TYPE 1 DIABETES MELLITUS
     Dosage: 5 U, PRN (EACH MEAL)
     Route: 058
  6. HUMALOG KWIKPEN [Suspect]
     Active Substance: INSULIN LISPRO
     Dosage: 5 U, PRN (EACH MEAL)
     Route: 058
  7. HUMALOG KWIKPEN [Suspect]
     Active Substance: INSULIN LISPRO
     Dosage: 5 U, PRN (EACH MEAL)
     Route: 058
  8. TOUJEO [Concomitant]
     Active Substance: INSULIN GLARGINE
     Indication: DIABETES MELLITUS
     Dosage: 9 U, EACH MORNING
  9. HUMALOG KWIKPEN [Suspect]
     Active Substance: INSULIN LISPRO
     Dosage: 5 U, PRN (EACH MEAL)
     Route: 058
  10. HUMALOG KWIKPEN [Suspect]
     Active Substance: INSULIN LISPRO
     Dosage: 5 U, PRN (EACH MEAL)
     Route: 058
  11. HUMALOG KWIKPEN [Suspect]
     Active Substance: INSULIN LISPRO
     Dosage: 5 U, PRN (EACH MEAL)
     Route: 058
  12. HUMALOG KWIKPEN [Suspect]
     Active Substance: INSULIN LISPRO
     Dosage: 5 U, PRN (EACH MEAL)
     Route: 058
  13. HUMALOG KWIKPEN [Suspect]
     Active Substance: INSULIN LISPRO
     Dosage: 5 U, PRN (EACH MEAL)
     Route: 058
  14. HUMALOG KWIKPEN [Suspect]
     Active Substance: INSULIN LISPRO
     Dosage: 5 U, PRN (EACH MEAL)
     Route: 058
  15. HUMALOG KWIKPEN [Suspect]
     Active Substance: INSULIN LISPRO
     Dosage: 5 U, PRN (EACH MEAL)
     Route: 058

REACTIONS (6)
  - Incorrect dose administered [Unknown]
  - Blood glucose increased [Unknown]
  - Blood glucose increased [Recovering/Resolving]
  - Blood glucose increased [Unknown]
  - Dementia Alzheimer^s type [Unknown]
  - Accidental underdose [Unknown]

NARRATIVE: CASE EVENT DATE: 2017
